FAERS Safety Report 8553613-X (Version None)
Quarter: 2012Q3

REPORT INFORMATION
  Report Type: 
  Country: None (occurrence: None)
  Receive Date: 20120731
  Receipt Date: 20120725
  Transmission Date: 20120928
  Serious: Yes (Other)
  Sender: FDA-Public Use
  Company Number: US-PFIZER INC-2012180647

PATIENT
  Sex: Female

DRUGS (6)
  1. MAGNESIUM [Concomitant]
     Indication: BLOOD MAGNESIUM DECREASED
     Dosage: 400 MG, 2X/DAY
  2. CALAN - SLOW RELEASE [Concomitant]
     Indication: BLOOD PRESSURE ABNORMAL
     Dosage: 240 MG, DAILY
  3. TORSEMIDE [Suspect]
     Indication: BLOOD PRESSURE ABNORMAL
     Dosage: 20 MG, DAILY
  4. LYRICA [Suspect]
     Indication: NEUROPATHY PERIPHERAL
     Dosage: 150 MG IN MORNING AND 300MG AT NIGHT
     Route: 048
  5. LYRICA [Suspect]
     Indication: FIBROMYALGIA
  6. HYDROCODONE [Concomitant]
     Indication: PAIN
     Dosage: UNK, 3X/DAY

REACTIONS (9)
  - NAUSEA [None]
  - DECREASED APPETITE [None]
  - ACCIDENT [None]
  - LIVER INJURY [None]
  - LOW DENSITY LIPOPROTEIN INCREASED [None]
  - GALLBLADDER INJURY [None]
  - BLOOD POTASSIUM DECREASED [None]
  - NERVOUSNESS [None]
  - TRAUMATIC LUNG INJURY [None]
